FAERS Safety Report 5981611-9 (Version None)
Quarter: 2008Q4

REPORT INFORMATION
  Report Type: 
  Country: None (occurrence: None)
  Receive Date: 20081205
  Receipt Date: 20081122
  Transmission Date: 20090506
  Serious: Yes (Other)
  Sender: FDA-Public Use
  Company Number: US-JNJFOC-20081106075

PATIENT
  Age: 81 Year
  Sex: Female
  Weight: 63.5 kg

DRUGS (11)
  1. EXTRA STRENGTH TYLENOL [Suspect]
     Indication: INSOMNIA
     Route: 048
  2. COREG [Concomitant]
  3. MUCINEX [Concomitant]
  4. DIGOXIN [Concomitant]
  5. SENNA [Concomitant]
  6. FUROSEMIDE [Concomitant]
  7. SPIRONOLACTONE [Concomitant]
  8. VANCOMYCIN HCL [Concomitant]
  9. FEOSOL [Concomitant]
  10. PROZAC [Concomitant]
  11. ASPIRIN [Concomitant]

REACTIONS (3)
  - MALAISE [None]
  - MENTAL STATUS CHANGES [None]
  - PRODUCT QUALITY ISSUE [None]
